FAERS Safety Report 11084806 (Version 2)
Quarter: 2015Q2

REPORT INFORMATION
  Report Type: Spontaneous
  Country: US (occurrence: US)
  Receive Date: 20150503
  Receipt Date: 20150525
  Transmission Date: 20150821
  Serious: No
  Sender: FDA-Public Use
  Company Number: US-JNJFOC-20150308143

PATIENT
  Sex: Female
  Weight: 102.06 kg

DRUGS (12)
  1. SOTALOL HCL [Concomitant]
     Active Substance: SOTALOL
     Route: 048
  2. XARELTO [Suspect]
     Active Substance: RIVAROXABAN
     Indication: CEREBROVASCULAR ACCIDENT PROPHYLAXIS
     Route: 048
     Dates: start: 201502
  3. TRIAMTERENE HCTZ [Concomitant]
     Active Substance: HYDROCHLOROTHIAZIDE\TRIAMTERENE
     Route: 048
  4. FISH OIL [Concomitant]
     Active Substance: FISH OIL
     Route: 065
  5. ALLOPURINOL. [Concomitant]
     Active Substance: ALLOPURINOL
     Dosage: MONDAY, WEDNESDAY AND FRIDAY
     Route: 048
  6. GLYBURIDE. [Concomitant]
     Active Substance: GLYBURIDE
     Route: 048
  7. NAPROXEN SODIUM. [Concomitant]
     Active Substance: NAPROXEN SODIUM
     Dosage: PRN
     Route: 048
  8. DILTIAZEM [Concomitant]
     Active Substance: DILTIAZEM
     Dosage: STRENGHT 20 MG
     Route: 048
  9. LISINOPRIL. [Concomitant]
     Active Substance: LISINOPRIL
     Route: 048
  10. ALLOPURINOL. [Concomitant]
     Active Substance: ALLOPURINOL
     Dosage: MONDAY, WEDNESDAY AND FRIDAY
     Route: 048
  11. POLYGLYCOLIC ACID [Concomitant]
     Active Substance: POLYGLYCOLIC ACID
     Route: 048
  12. XARELTO [Suspect]
     Active Substance: RIVAROXABAN
     Indication: ATRIAL FIBRILLATION
     Route: 048
     Dates: start: 201502

REACTIONS (3)
  - Contusion [Not Recovered/Not Resolved]
  - Wound [Not Recovered/Not Resolved]
  - Pruritus [Not Recovered/Not Resolved]

NARRATIVE: CASE EVENT DATE: 2015
